FAERS Safety Report 11183745 (Version 1)
Quarter: 2015Q2

REPORT INFORMATION
  Report Type: Spontaneous
  Country: US (occurrence: US)
  Receive Date: 20150612
  Receipt Date: 20150612
  Transmission Date: 20150821
  Serious: No
  Sender: FDA-Public Use
  Company Number: US-HORIZON-RAV-0027-2015

PATIENT
  Age: 69 Year
  Sex: Female

DRUGS (3)
  1. METOPROLOL [Concomitant]
     Active Substance: METOPROLOL
  2. JANTOVEN [Concomitant]
     Active Substance: WARFARIN SODIUM
  3. RAVICTI [Suspect]
     Active Substance: GLYCEROL PHENYLBUTYRATE
     Indication: UREA CYCLE ENZYME DEFICIENCY

REACTIONS (6)
  - Dizziness [Unknown]
  - Treatment noncompliance [Unknown]
  - Insomnia [Unknown]
  - Blood potassium decreased [Unknown]
  - Diet noncompliance [Unknown]
  - Constipation [Unknown]
